FAERS Safety Report 26086424 (Version 1)
Quarter: 2025Q4

REPORT INFORMATION
  Report Type: Report from Study
  Country: US (occurrence: US)
  Receive Date: 20251125
  Receipt Date: 20251125
  Transmission Date: 20260117
  Serious: Yes (Hospitalization, Other)
  Sender: GILEAD
  Company Number: US-GILEAD-2025-0735662

PATIENT
  Sex: Male

DRUGS (3)
  1. AZTREONAM LYSINE [Suspect]
     Active Substance: AZTREONAM LYSINE
     Indication: Bacterial infection
     Dosage: 75 MG, TID
     Route: 055
  2. TOBRAMYCIN [Concomitant]
     Active Substance: TOBRAMYCIN
     Dosage: 300MG/5ML AMP 56 PK
  3. PULMOZYME [Concomitant]
     Active Substance: DORNASE ALFA
     Dosage: 1MG/ML 2.5ML AMP 6^S

REACTIONS (2)
  - Pneumonia [Unknown]
  - Product use in unapproved indication [Not Recovered/Not Resolved]
